FAERS Safety Report 5378531-X (Version None)
Quarter: 2007Q3

REPORT INFORMATION
  Report Type: 
  Country: None (occurrence: None)
  Receive Date: 20070705
  Receipt Date: 20070625
  Transmission Date: 20080115
  Serious: Yes (Other)
  Sender: FDA-Public Use
  Company Number: ES-ASTRAZENECA-2007AC01199

PATIENT
  Age: 36 Year
  Sex: Male
  Weight: 81 kg

DRUGS (10)
  1. ATACAND [Suspect]
     Indication: ESSENTIAL HYPERTENSION
     Route: 048
     Dates: start: 20010101
  2. DACORTIN [Suspect]
     Indication: COLITIS ULCERATIVE
     Route: 048
     Dates: start: 20000101, end: 20070501
  3. PARIET [Suspect]
     Indication: ANASTOMOTIC ULCER HAEMORRHAGE
     Route: 048
     Dates: start: 20000101, end: 20070501
  4. DURAGESIC-100 [Suspect]
     Indication: ANKYLOSING SPONDYLITIS
     Route: 062
     Dates: start: 20050101
  5. DURAGESIC-100 [Suspect]
     Indication: SPONDYLOARTHROPATHY
     Route: 062
     Dates: start: 20050101
  6. TRAVATAN [Suspect]
     Indication: GLAUCOMA
     Route: 061
     Dates: start: 20040101
  7. TIMOFTOL [Suspect]
     Indication: GLAUCOMA
     Dosage: 0.25% 3ML
     Route: 061
     Dates: start: 20040101
  8. CLAVERSAL [Suspect]
     Indication: COLITIS ULCERATIVE
     Route: 048
     Dates: start: 20000101
  9. ACTONEL [Suspect]
     Indication: OSTEOPOROSIS
     Route: 048
     Dates: start: 20020101
  10. NATECAL D [Suspect]
     Indication: OSTEOPOROSIS
     Route: 048
     Dates: start: 20020101

REACTIONS (1)
  - GYNAECOMASTIA [None]
